FAERS Safety Report 6818302-8 (Version None)
Quarter: 2010Q3

REPORT INFORMATION
  Report Type: 
  Country: None (occurrence: None)
  Receive Date: 20100706
  Receipt Date: 20071030
  Transmission Date: 20110219
  Serious: No
  Sender: FDA-Public Use
  Company Number: US-PFIZER INC-2007091935

PATIENT
  Sex: Male

DRUGS (19)
  1. ZITROMAX [Suspect]
     Route: 048
     Dates: start: 20070920, end: 20070920
  2. ZITROMAX [Suspect]
     Route: 048
     Dates: start: 20070921, end: 20070924
  3. RANEXA [Suspect]
     Indication: ANGINA PECTORIS
     Dates: start: 20070918
  4. WARFARIN [Suspect]
     Dosage: FREQUENCY: Q WEEKLY
     Dates: start: 20070808, end: 20070822
  5. WARFARIN [Suspect]
     Dosage: FREQUENCY: Q WEEKLY
     Dates: start: 20070107, end: 20070920
  6. WARFARIN [Suspect]
     Dosage: FREQUENCY: Q WEEKLY
     Dates: start: 20070920, end: 20070928
  7. WARFARIN [Suspect]
     Dosage: FREQUENCY: Q WEEKLY
     Dates: start: 20070930
  8. ALBUTEROL [Concomitant]
  9. CLOTRIMAZOLE [Concomitant]
  10. GEMFIBROZIL [Concomitant]
  11. LOSARTAN POSTASSIUM [Concomitant]
  12. ROSIGLITAZONE MALEATE [Concomitant]
  13. RANITIDINE [Concomitant]
  14. ATENOLOL [Concomitant]
  15. FUROSEMIDE [Concomitant]
  16. GLYBURIDE [Concomitant]
  17. DICLOFENAC SODIUM [Concomitant]
  18. SIMVASTATIN [Concomitant]
  19. NITROGLYCERIN [Concomitant]

REACTIONS (1)
  - INTERNATIONAL NORMALISED RATIO INCREASED [None]
